FAERS Safety Report 8081556-7 (Version None)
Quarter: 2012Q1

REPORT INFORMATION
  Report Type: 
  Country: None (occurrence: None)
  Receive Date: 20120130
  Receipt Date: 20120109
  Transmission Date: 20120608
  Serious: No
  Sender: FDA-Public Use
  Company Number: US-ROXANE LABORATORIES, INC.-2012-RO-00472RO

PATIENT
  Sex: Female

DRUGS (1)
  1. CODEINE SULFATE [Suspect]
     Indication: PAIN
     Route: 048

REACTIONS (6)
  - RENAL DISORDER [None]
  - DRUG INEFFECTIVE [None]
  - GALLBLADDER DISORDER [None]
  - RESPIRATORY DISORDER [None]
  - ABDOMINAL DISCOMFORT [None]
  - GASTROINTESTINAL DISORDER [None]
